FAERS Safety Report 24823424 (Version 1)
Quarter: 2025Q1

REPORT INFORMATION
  Report Type: Spontaneous
  Country: US (occurrence: US)
  Receive Date: 20250109
  Receipt Date: 20250109
  Transmission Date: 20250409
  Serious: No
  Sender: DR REDDYS
  Company Number: US-DRL-USA-USA/2025/01/000065

PATIENT
  Age: 37 Year
  Sex: Male

DRUGS (12)
  1. DOXYCYCLINE [Suspect]
     Active Substance: DOXYCYCLINE
     Indication: Helicobacter infection
  2. DOXYCYCLINE [Suspect]
     Active Substance: DOXYCYCLINE
     Route: 042
  3. LEVOFLOXACIN [Suspect]
     Active Substance: LEVOFLOXACIN
     Indication: Helicobacter infection
  4. OMEPRAZOLE [Suspect]
     Active Substance: OMEPRAZOLE
     Indication: Helicobacter infection
     Route: 048
  5. OMEPRAZOLE [Suspect]
     Active Substance: OMEPRAZOLE
  6. METRONIDAZOLE [Concomitant]
     Active Substance: METRONIDAZOLE
     Indication: Helicobacter infection
  7. BISMUTH [Concomitant]
     Active Substance: BISMUTH SUBSALICYLATE
     Indication: Helicobacter infection
  8. TETRACYCLINE [Concomitant]
     Active Substance: TETRACYCLINE
     Indication: Helicobacter infection
  9. NITAZOXANIDE [Concomitant]
     Active Substance: NITAZOXANIDE
     Indication: Helicobacter infection
  10. AMOXICILLIN [Concomitant]
     Active Substance: AMOXICILLIN
     Indication: Helicobacter infection
  11. TALICIA [Concomitant]
     Active Substance: AMOXICILLIN\OMEPRAZOLE MAGNESIUM\RIFABUTIN
     Indication: Helicobacter infection
  12. CEFTRIAXONE [Concomitant]
     Active Substance: CEFTRIAXONE
     Indication: Helicobacter infection
     Dosage: TOTAL DURATION OF 14 DAYS
     Route: 042

REACTIONS (2)
  - Drug ineffective [Unknown]
  - Product use in unapproved indication [Unknown]
